FAERS Safety Report 9425011 (Version 1)
Quarter: 2013Q3

REPORT INFORMATION
  Report Type: Spontaneous
  Country: GB (occurrence: GB)
  Receive Date: 20130729
  Receipt Date: 20130729
  Transmission Date: 20140515
  Serious: Yes (Other)
  Sender: FDA-Public Use
  Company Number: GB-TEVA-420149ISR

PATIENT
  Age: 70 Year
  Sex: Female
  Weight: 77 kg

DRUGS (10)
  1. DOXAZOSIN [Suspect]
     Indication: BLOOD PRESSURE INCREASED
     Route: 048
     Dates: end: 2013
  2. DOXAZOSIN [Suspect]
     Indication: BLOOD PRESSURE INCREASED
     Route: 048
     Dates: start: 2000
  3. QUININE ACID SULPHATE [Concomitant]
  4. BENDROFLUMETHIAZIDE [Concomitant]
  5. PARACETAMOL [Concomitant]
  6. OMEPRAZOLE [Concomitant]
  7. COUCH GRASS [Concomitant]
  8. EQUISETUM [Concomitant]
  9. KELP [Concomitant]
  10. SOLIDAGO [Concomitant]

REACTIONS (9)
  - Urinary incontinence [Recovered/Resolved]
  - Movement disorder [Recovered/Resolved with Sequelae]
  - Alopecia [Recovered/Resolved with Sequelae]
  - Confusional state [Recovered/Resolved with Sequelae]
  - Gait disturbance [Not Recovered/Not Resolved]
  - Memory impairment [Recovered/Resolved with Sequelae]
  - Faecal incontinence [Recovered/Resolved]
  - Reaction to drug excipients [Unknown]
  - Feeling abnormal [Recovered/Resolved with Sequelae]
